FAERS Safety Report 6731940-6 (Version None)
Quarter: 2010Q2

REPORT INFORMATION
  Report Type: 
  Country: None (occurrence: None)
  Receive Date: 20100519
  Receipt Date: 20100517
  Transmission Date: 20101027
  Serious: Yes (Other)
  Sender: FDA-Public Use
  Company Number: DE-ROXANE LABORATORIES, INC.-2010-RO-00581RO

PATIENT
  Age: 24 Year
  Sex: Female

DRUGS (4)
  1. DEXAMETHASONE [Suspect]
  2. DEXAMETHASONE [Suspect]
  3. OFLOXACIN [Suspect]
  4. FLUOROMETHOLONE [Suspect]

REACTIONS (3)
  - HYPERTENSION [None]
  - INTRAOCULAR PRESSURE INCREASED [None]
  - REFRACTION DISORDER [None]
